FAERS Safety Report 18904759 (Version 4)
Quarter: 2022Q2

REPORT INFORMATION
  Report Type: Report from Study
  Country: US (occurrence: US)
  Receive Date: 20210217
  Receipt Date: 20220426
  Transmission Date: 20220721
  Serious: Yes (Other)
  Sender: FDA-Public Use
  Company Number: NVSC2021US035538

PATIENT
  Sex: Female

DRUGS (1)
  1. TRILEPTAL [Suspect]
     Active Substance: OXCARBAZEPINE
     Indication: Product used for unknown indication
     Dosage: UNK
     Route: 065

REACTIONS (7)
  - Seizure [Unknown]
  - Dementia [Unknown]
  - Memory impairment [Unknown]
  - Muscle spasms [Unknown]
  - Feeding disorder [Unknown]
  - Compulsive hoarding [Unknown]
  - Confusional state [Unknown]
